FAERS Safety Report 4919469-9 (Version None)
Quarter: 2006Q1

REPORT INFORMATION
  Report Type: 
  Country: None (occurrence: None)
  Receive Date: 20060222
  Receipt Date: 20051019
  Transmission Date: 20060701
  Serious: Yes (Other)
  Sender: FDA-Public Use
  Company Number: US-MERCK-0510USA08245

PATIENT
  Sex: Female
  Weight: 86 kg

DRUGS (11)
  1. VIOXX [Suspect]
     Indication: ARTHRALGIA
     Route: 048
     Dates: start: 19990101, end: 20040827
  2. TOPROL-XL [Concomitant]
     Indication: HYPERTENSION
     Route: 065
     Dates: start: 20010101
  3. XANAX [Concomitant]
     Indication: DEPRESSION
     Route: 065
  4. ZOLOFT [Concomitant]
     Indication: DEPRESSION
     Route: 065
  5. OXYCONTIN [Suspect]
     Route: 065
  6. BEXTRA [Concomitant]
     Indication: ARTHRALGIA
     Route: 065
  7. CELEBREX [Concomitant]
     Indication: ARTHRALGIA
     Route: 065
     Dates: end: 20050101
  8. LASIX [Concomitant]
     Indication: HYPERTENSION
     Route: 065
     Dates: start: 20010101
  9. LASIX [Concomitant]
     Indication: OEDEMA PERIPHERAL
     Route: 065
     Dates: start: 20010101
  10. ACCUPRIL [Concomitant]
     Indication: HYPERTENSION
     Route: 065
     Dates: start: 20010101
  11. IBUPROFEN [Concomitant]
     Route: 065

REACTIONS (12)
  - ABDOMINAL PAIN UPPER [None]
  - ARTHROPATHY [None]
  - BREAST CANCER [None]
  - BREAST CANCER FEMALE [None]
  - CARDIAC MURMUR [None]
  - CEREBROVASCULAR ACCIDENT [None]
  - CHEST PAIN [None]
  - DIARRHOEA [None]
  - HYPERTENSION [None]
  - MYOCARDIAL INFARCTION [None]
  - PRESCRIBED OVERDOSE [None]
  - THROMBOSIS [None]
